FAERS Safety Report 4682507-5 (Version None)
Quarter: 2005Q2

REPORT INFORMATION
  Report Type: 
  Country: None (occurrence: None)
  Receive Date: 20050606
  Receipt Date: 20050518
  Transmission Date: 20051028
  Serious: Yes (Hospitalization)
  Sender: FDA-Public Use
  Company Number: JP-MERCK-0505USA02399

PATIENT
  Age: 78 Year
  Sex: Male

DRUGS (6)
  1. FOSAMAX [Suspect]
     Route: 048
     Dates: start: 20050407
  2. RISEDRONATE SODIUM [Concomitant]
     Route: 048
     Dates: start: 20050121
  3. TAKEPRON [Concomitant]
     Route: 048
     Dates: start: 20050121
  4. BAKTAR [Concomitant]
     Route: 048
     Dates: start: 20050121
  5. KLARICID [Concomitant]
     Indication: PNEUMONIA
     Route: 048
     Dates: start: 20050121
  6. CRAVIT [Suspect]
     Route: 048
     Dates: start: 20050407, end: 20050413

REACTIONS (6)
  - C-REACTIVE PROTEIN INCREASED [None]
  - EYE PRURITUS [None]
  - OCULAR HYPERAEMIA [None]
  - PYREXIA [None]
  - RASH [None]
  - TOXIC EPIDERMAL NECROLYSIS [None]
